FAERS Safety Report 23075291 (Version 1)
Quarter: 2023Q4

REPORT INFORMATION
  Report Type: Spontaneous
  Country: US (occurrence: None)
  Receive Date: 20231017
  Receipt Date: 20231017
  Transmission Date: 20240110
  Serious: Yes (Hospitalization)
  Sender: FDA-Public Use
  Company Number: None

PATIENT
  Age: 55 Year
  Sex: Female

DRUGS (1)
  1. BELATACEPT [Suspect]
     Active Substance: BELATACEPT
     Indication: Renal transplant

REACTIONS (14)
  - Polyuria [None]
  - Pollakiuria [None]
  - Micturition urgency [None]
  - Pyrexia [None]
  - Chills [None]
  - Tachycardia [None]
  - Swelling [None]
  - Proteinuria [None]
  - Haematuria [None]
  - White blood cells urine positive [None]
  - Nitrite urine present [None]
  - Blood creatinine increased [None]
  - Enterococcus test positive [None]
  - Escherichia bacteraemia [None]

NARRATIVE: CASE EVENT DATE: 20231011
